FAERS Safety Report 4900067-8 (Version None)
Quarter: 2006Q1

REPORT INFORMATION
  Report Type: 
  Country: None (occurrence: None)
  Receive Date: 20060203
  Receipt Date: 20051128
  Transmission Date: 20060701
  Serious: Yes (Disabling)
  Sender: FDA-Public Use
  Company Number: DE-AVENTIS-200512731DE

PATIENT
  Age: 75 Year
  Sex: Female
  Weight: 56 kg

DRUGS (11)
  1. ENOXAPARIN SODIUM [Suspect]
     Indication: THROMBOSIS PROPHYLAXIS
     Dosage: DOSE: 0.2 AT DAYS OF DIALYSIS
     Route: 058
     Dates: start: 20050602, end: 20051127
  2. ENOXAPARIN SODIUM [Suspect]
     Dosage: DOSE: 0.2 AT DAYS OF DIALYSIS
     Route: 058
     Dates: start: 20050602, end: 20051127
  3. ENOXAPARIN SODIUM [Suspect]
     Dosage: DOSE: 0.2 AT DAYS OF DIALYSIS
     Route: 058
     Dates: start: 20050602, end: 20051127
  4. HEPARIN [Suspect]
     Indication: ANTICOAGULANT THERAPY
     Dosage: DOSE: 3600IU AT DAYS OF DIALYSIS
     Route: 042
     Dates: start: 20050623, end: 20060111
  5. HEPARIN [Suspect]
     Indication: DIALYSIS
     Dosage: DOSE: 3600IU AT DAYS OF DIALYSIS
     Route: 042
     Dates: start: 20050623, end: 20060111
  6. MARCUMAR [Concomitant]
     Dosage: DOSE: ACCORDING TO INR
     Route: 048
     Dates: end: 20050601
  7. ATACAND [Concomitant]
     Indication: HYPERTENSION
     Route: 048
     Dates: start: 20040401
  8. DIGIMERCK MINOR [Concomitant]
     Indication: ATRIAL FIBRILLATION
     Route: 048
     Dates: start: 20051001
  9. TORSEMIDE [Concomitant]
     Indication: CARDIAC FAILURE
     Route: 048
     Dates: start: 20050401
  10. TORSEMIDE [Concomitant]
     Indication: RENAL FAILURE
     Route: 048
     Dates: start: 20050401
  11. CALCIUM ACETATE [Concomitant]
     Indication: ANTICOAGULANT THERAPY
     Route: 048
     Dates: start: 20050601

REACTIONS (4)
  - BREAST MASS [None]
  - BREAST PAIN [None]
  - FAT NECROSIS [None]
  - SKIN NECROSIS [None]
